FAERS Safety Report 19675198 (Version 1)
Quarter: 2021Q3

REPORT INFORMATION
  Report Type: Spontaneous
  Country: CA (occurrence: CA)
  Receive Date: 20210809
  Receipt Date: 20210809
  Transmission Date: 20211014
  Serious: Yes (Life-Threatening, Other)
  Sender: FDA-Public Use
  Company Number: CA-TEVA-2021-CA-1939250

PATIENT
  Sex: Female

DRUGS (3)
  1. PANTOPRAZOLE [Suspect]
     Active Substance: PANTOPRAZOLE
     Indication: ABDOMINAL DISCOMFORT
     Route: 065
  2. ALCOHOL. [Concomitant]
     Active Substance: ALCOHOL
  3. NICORETTE QUICKMIST [Suspect]
     Active Substance: NICOTINE

REACTIONS (23)
  - Bedridden [Unknown]
  - Feeling abnormal [Unknown]
  - Flatulence [Unknown]
  - Hypophagia [Unknown]
  - Allergy to chemicals [Unknown]
  - Constipation [Unknown]
  - Decreased appetite [Unknown]
  - Discomfort [Unknown]
  - Disturbance in attention [Unknown]
  - Dyspepsia [Unknown]
  - Rebound acid hypersecretion [Unknown]
  - Abdominal distension [Unknown]
  - Anxiety [Unknown]
  - Gastrointestinal obstruction [Unknown]
  - Head discomfort [Unknown]
  - Illness [Unknown]
  - Impaired work ability [Unknown]
  - Weight increased [Unknown]
  - Drug interaction [Unknown]
  - Product use complaint [Unknown]
  - Feeling hot [Unknown]
  - Irritable bowel syndrome [Unknown]
  - Aerophagia [Unknown]
